FAERS Safety Report 16368645 (Version 3)
Quarter: 2019Q3

REPORT INFORMATION
  Report Type: Spontaneous
  Country: US (occurrence: US)
  Receive Date: 20190529
  Receipt Date: 20190927
  Transmission Date: 20191004
  Serious: Yes (Hospitalization, Other)
  Sender: FDA-Public Use
  Company Number: US-ASTRAZENECA-2019SE75941

PATIENT
  Age: 23504 Day
  Sex: Male
  Weight: 106.1 kg

DRUGS (21)
  1. GLIPIZIDE. [Concomitant]
     Active Substance: GLIPIZIDE
  2. MELOXICAM. [Concomitant]
     Active Substance: MELOXICAM
  3. CARVEDILOL. [Concomitant]
     Active Substance: CARVEDILOL
  4. PIOGLITAZONE. [Concomitant]
     Active Substance: PIOGLITAZONE
  5. ONGLYZA [Suspect]
     Active Substance: SAXAGLIPTIN HYDROCHLORIDE
     Indication: TYPE 2 DIABETES MELLITUS
     Dosage: 5.0MG UNKNOWN
     Route: 048
     Dates: start: 20171201, end: 20180608
  6. ONGLYZA [Suspect]
     Active Substance: SAXAGLIPTIN HYDROCHLORIDE
     Indication: TYPE 2 DIABETES MELLITUS
     Dosage: UNKNOWN
     Route: 048
     Dates: start: 20171002, end: 20180327
  7. EZETIMIBE. [Concomitant]
     Active Substance: EZETIMIBE
  8. POTASSIM CHLORIDE [Concomitant]
  9. HYDROCHLOROTHIAZIDE. [Concomitant]
     Active Substance: HYDROCHLOROTHIAZIDE
  10. IBUPROFEN. [Concomitant]
     Active Substance: IBUPROFEN
  11. LOSARTAN. [Concomitant]
     Active Substance: LOSARTAN
  12. EMPAGLIFLOZIN [Concomitant]
     Active Substance: EMPAGLIFLOZIN
  13. ATORVASTATIN [Concomitant]
     Active Substance: ATORVASTATIN
  14. METFORMIN [Concomitant]
     Active Substance: METFORMIN HYDROCHLORIDE
  15. SILDENAFIL. [Concomitant]
     Active Substance: SILDENAFIL
  16. SPIRONOLACTONE. [Concomitant]
     Active Substance: SPIRONOLACTONE
  17. SEMAGLUTIDE [Concomitant]
     Active Substance: SEMAGLUTIDE
  18. ONGLYZA [Suspect]
     Active Substance: SAXAGLIPTIN HYDROCHLORIDE
     Indication: TYPE 2 DIABETES MELLITUS
     Route: 048
     Dates: start: 20171201
  19. LORATADINE. [Concomitant]
     Active Substance: LORATADINE
  20. ROSUVASTATIN. [Concomitant]
     Active Substance: ROSUVASTATIN
  21. POTASSIM CHLORIDE [Concomitant]

REACTIONS (7)
  - Cardiac failure congestive [Unknown]
  - Cardiac failure [Unknown]
  - Acute left ventricular failure [Unknown]
  - Acute myocardial infarction [Unknown]
  - Myocardial infarction [Unknown]
  - Chronic left ventricular failure [Unknown]
  - Cardiac failure acute [Unknown]

NARRATIVE: CASE EVENT DATE: 20180220
